FAERS Safety Report 4478143-6 (Version None)
Quarter: 2004Q4

REPORT INFORMATION
  Report Type: 
  Country: None (occurrence: None)
  Receive Date: 20041013
  Receipt Date: 20040929
  Transmission Date: 20050328
  Serious: Yes (Hospitalization)
  Sender: FDA-Public Use
  Company Number: DE_040713966

PATIENT
  Age: 66 Year
  Sex: Female

DRUGS (2)
  1. FORTEO [Suspect]
     Indication: OSTEOPOROTIC FRACTURE
     Dosage: 20 UG
     Dates: start: 20040714, end: 20040714
  2. DURAGESIC [Concomitant]

REACTIONS (6)
  - ABDOMINAL PAIN [None]
  - ABDOMINAL PAIN LOWER [None]
  - FORMICATION [None]
  - HEADACHE [None]
  - PAIN IN EXTREMITY [None]
  - PRURITUS GENERALISED [None]
